FAERS Safety Report 7653511-X (Version None)
Quarter: 2011Q3

REPORT INFORMATION
  Report Type: 
  Country: None (occurrence: None)
  Receive Date: 20110803
  Receipt Date: 20110722
  Transmission Date: 20111222
  Serious: No
  Sender: FDA-Public Use
  Company Number: US-BAYER-2011-066053

PATIENT
  Sex: Female

DRUGS (2)
  1. ALEVE (CAPLET) [Suspect]
     Indication: PAIN IN JAW
     Dosage: 1 DF, UNK
     Route: 048
  2. ALEVE (CAPLET) [Suspect]
     Indication: HEADACHE

REACTIONS (2)
  - FEELING ABNORMAL [None]
  - VOMITING [None]
